FAERS Safety Report 20652024 (Version 1)
Quarter: 2022Q1

REPORT INFORMATION
  Report Type: Spontaneous
  Country: ES (occurrence: ES)
  Receive Date: 20220330
  Receipt Date: 20220330
  Transmission Date: 20220423
  Serious: Yes (Death, Life-Threatening, Hospitalization, Other)
  Sender: FDA-Public Use
  Company Number: ES-AMGEN-ESPSP2022052687

PATIENT

DRUGS (3)
  1. ADALIMUMAB [Suspect]
     Active Substance: ADALIMUMAB
     Indication: Crohn^s disease
     Route: 065
  2. ADALIMUMAB [Suspect]
     Active Substance: ADALIMUMAB
     Indication: Colitis ulcerative
  3. ADALIMUMAB [Suspect]
     Active Substance: ADALIMUMAB
     Indication: Inflammatory bowel disease

REACTIONS (13)
  - Death [Fatal]
  - Post procedural complication [Unknown]
  - Intestinal anastomosis [Unknown]
  - Intestinal obstruction [Unknown]
  - Postoperative ileus [Unknown]
  - Haemorrhage [Unknown]
  - Fistula [Unknown]
  - Wound evisceration [Unknown]
  - Unevaluable event [Unknown]
  - Thrombosis [Unknown]
  - Infection [Unknown]
  - Abdominal infection [Unknown]
  - Wound infection [Unknown]
